FAERS Safety Report 10301904 (Version 1)
Quarter: 2014Q3

REPORT INFORMATION
  Report Type: Spontaneous
  Country: GB (occurrence: None)
  Receive Date: 20140709
  Receipt Date: 20140709
  Transmission Date: 20150326
  Serious: Yes (Hospitalization)
  Sender: FDA-Public Use
  Company Number: AUR-APL-2014-07152

PATIENT
  Age: 76 Year
  Sex: Male

DRUGS (7)
  1. ASPIRIN (ACETYLSALICYLIC ACID) [Concomitant]
     Active Substance: ASPIRIN
  2. DIPYRIDAMOLE (DIPYRIDAMOLE) [Concomitant]
  3. LANSOPRAZOLE (LANSOPRAZOLE) [Concomitant]
     Active Substance: LANSOPRAZOLE
  4. SIMVASTATIN (SIMVASTATIN) [Concomitant]
     Active Substance: SIMVASTATIN
  5. LOSARTAN (LOSARTAN) [Concomitant]
     Active Substance: LOSARTAN
  6. NAPROXEN 500 MG (NAPROXEN)UNKNOWN, 500 MG [Suspect]
     Active Substance: NAPROXEN
     Indication: OSTEOARTHRITIS
     Route: 048
     Dates: start: 20140414, end: 20140428
  7. CETIRIZINE (CETIRIZINE) [Concomitant]
     Active Substance: CETIRIZINE HYDROCHLORIDE

REACTIONS (1)
  - Rash erythematous [None]

NARRATIVE: CASE EVENT DATE: 20140426
